FAERS Safety Report 8848336 (Version 2)
Quarter: 2012Q4

REPORT INFORMATION
  Report Type: 
  Country: BR (occurrence: BR)
  Receive Date: 20121019
  Receipt Date: 20121228
  Transmission Date: 20130627
  Serious: Yes (Death, Other)
  Sender: FDA-Public Use
  Company Number: BR-AMGEN-BRASP2012066047

PATIENT
  Age: 50 Year
  Sex: Male
  Weight: 90 kg

DRUGS (1)
  1. ENBREL [Suspect]
     Indication: ANKYLOSING SPONDYLITIS
     Dosage: 50 mg, once weekly
     Route: 058
     Dates: start: 201108, end: 20111106

REACTIONS (10)
  - Ankylosing spondylitis [Fatal]
  - Urinary tract infection [Fatal]
  - Multi-organ failure [Unknown]
  - Renal failure [Unknown]
  - Anuria [Unknown]
  - Infection [Recovered/Resolved]
  - Feeding disorder [Recovered/Resolved]
  - Asthenia [Recovered/Resolved]
  - Septic shock [Fatal]
  - Sepsis [Fatal]
